FAERS Safety Report 14947549 (Version 2)
Quarter: 2024Q4

REPORT INFORMATION
  Report Type: Spontaneous
  Country: PT (occurrence: PT)
  Receive Date: 20180529
  Receipt Date: 20241106
  Transmission Date: 20250114
  Serious: Yes (Other)
  Sender: MYLAN
  Company Number: PT-NOVPHSZ-PHHY2018PT004595

PATIENT
  Age: 25 Year
  Sex: Male

DRUGS (6)
  1. MYCOPHENOLATE MOFETIL [Suspect]
     Active Substance: MYCOPHENOLATE MOFETIL
     Indication: Immunosuppressant drug therapy
     Dosage: UNK
     Route: 065
  2. MYCOPHENOLATE MOFETIL [Suspect]
     Active Substance: MYCOPHENOLATE MOFETIL
     Indication: Renal transplant
  3. PREDNISONE [Suspect]
     Active Substance: PREDNISONE
     Indication: Immunosuppressant drug therapy
     Dosage: UNK
     Route: 065
  4. PREDNISONE [Suspect]
     Active Substance: PREDNISONE
     Indication: Renal transplant
  5. TACROLIMUS [Suspect]
     Active Substance: TACROLIMUS
     Indication: Immunosuppressant drug therapy
     Dosage: UNK
     Route: 065
  6. TACROLIMUS [Suspect]
     Active Substance: TACROLIMUS
     Indication: Renal transplant

REACTIONS (3)
  - Kidney transplant rejection [Recovering/Resolving]
  - Polyomavirus-associated nephropathy [Unknown]
  - Complications of transplanted kidney [Recovering/Resolving]
